FAERS Safety Report 10724001 (Version 2)
Quarter: 2015Q2

REPORT INFORMATION
  Report Type: Report from Study
  Country: US (occurrence: US)
  Receive Date: 20150120
  Receipt Date: 20150617
  Transmission Date: 20150821
  Serious: Yes (Other)
  Sender: FDA-Public Use
  Company Number: US-GILEAD-2015-0132581

PATIENT
  Age: 65 Year
  Sex: Female

DRUGS (1)
  1. LEDIPASVIR/SOFOSBUVIR [Suspect]
     Active Substance: LEDIPASVIR\SOFOSBUVIR
     Indication: CHRONIC HEPATITIS C
     Dosage: 1 DF, UNK
     Route: 048
     Dates: start: 201411

REACTIONS (6)
  - Headache [Unknown]
  - Nausea [Unknown]
  - Hypertension [Unknown]
  - Depression [Unknown]
  - Abnormal loss of weight [Unknown]
  - Diabetes mellitus [Unknown]
